FAERS Safety Report 4894514-8 (Version None)
Quarter: 2006Q1

REPORT INFORMATION
  Report Type: 
  Country: None (occurrence: None)
  Receive Date: 20060127
  Receipt Date: 20060118
  Transmission Date: 20060701
  Serious: Yes (Disabling, Other)
  Sender: FDA-Public Use
  Company Number: US-JNJFOC-20060104072

PATIENT
  Sex: Female
  Weight: 47.17 kg

DRUGS (13)
  1. DURAGESIC-100 [Suspect]
     Route: 062
  2. ZANAFLEX [Concomitant]
     Indication: BACK PAIN
     Route: 048
  3. VISTARIL [Concomitant]
     Indication: NAUSEA
     Route: 048
  4. LEXAPRO [Concomitant]
     Indication: DEPRESSION
     Route: 048
  5. XANAX [Concomitant]
     Indication: DEPRESSION
     Route: 048
  6. DONNATAL [Concomitant]
     Route: 048
  7. DONNATAL [Concomitant]
     Route: 048
  8. DONNATAL [Concomitant]
     Route: 048
  9. DONNATAL [Concomitant]
     Indication: ULCER
     Route: 048
  10. BENTYL [Concomitant]
     Indication: ULCER
     Route: 048
  11. NEXIUM [Concomitant]
     Route: 048
  12. VITAMIN B-12 [Concomitant]
     Route: 030
  13. TORADOL [Concomitant]
     Route: 030

REACTIONS (7)
  - BEDRIDDEN [None]
  - DECREASED APPETITE [None]
  - DEHYDRATION [None]
  - DENTAL CARIES [None]
  - NAUSEA [None]
  - SYSTEMIC LUPUS ERYTHEMATOSUS [None]
  - WEIGHT DECREASED [None]
